FAERS Safety Report 5134509-2 (Version None)
Quarter: 2006Q4

REPORT INFORMATION
  Report Type: 
  Country: None (occurrence: None)
  Receive Date: 20061019
  Receipt Date: 20061003
  Transmission Date: 20070319
  Serious: Yes (Hospitalization, Other)
  Sender: FDA-Public Use
  Company Number: US200608003290

PATIENT
  Age: 46 Year
  Sex: Female
  Weight: 53.1 kg

DRUGS (9)
  1. CYMBALTA [Suspect]
     Indication: DEPRESSION
     Dosage: SEE IMAGE
     Dates: start: 20050114, end: 20050501
  2. CYMBALTA [Suspect]
     Indication: DEPRESSION
     Dosage: SEE IMAGE
     Dates: start: 20050501, end: 20060801
  3. CAPTOPRIL [Concomitant]
  4. LISINOPRIL [Concomitant]
  5. NEXIUM [Concomitant]
  6. PREDNISONE TAB [Concomitant]
  7. HYDROCHLORZIDE (HYDROCHLOROTHIAZIDE) [Concomitant]
  8. POTASSIUM CHLORIDE [Concomitant]
  9. ACE INHIBITOR NOS [Concomitant]

REACTIONS (6)
  - AURA [None]
  - CEREBROVASCULAR ACCIDENT [None]
  - CONVULSION [None]
  - FAECAL INCONTINENCE [None]
  - GRAND MAL CONVULSION [None]
  - URINARY INCONTINENCE [None]
